FAERS Safety Report 6969007-4 (Version None)
Quarter: 2010Q3

REPORT INFORMATION
  Report Type: 
  Country: None (occurrence: None)
  Receive Date: 20100907
  Receipt Date: 20100825
  Transmission Date: 20110219
  Serious: Yes (Death, Hospitalization)
  Sender: FDA-Public Use
  Company Number: SE-PFIZER INC-2010075151

PATIENT
  Age: 37 Year
  Sex: Male
  Weight: 94 kg

DRUGS (3)
  1. SOMATROPIN [Suspect]
     Indication: HYPOPITUITARISM
     Dosage: 0.4 MG, 1XDAY, 7 INJECTIONS/WEEK
     Route: 058
     Dates: start: 20090428
  2. AMLODIPINE [Concomitant]
     Dosage: 10 MG, 1X/DAY
     Route: 048
     Dates: start: 20100514
  3. LEVOTHYROXINE [Concomitant]
     Indication: HYPOTHYROIDISM
     Dosage: 100UG/DAY
     Route: 048
     Dates: start: 20080813

REACTIONS (2)
  - HAEMOPTYSIS [None]
  - PULMONARY EMBOLISM [None]
